FAERS Safety Report 8128659-6 (Version None)
Quarter: 2012Q1

REPORT INFORMATION
  Report Type: 
  Country: None (occurrence: None)
  Receive Date: 20120210
  Receipt Date: 20111221
  Transmission Date: 20120608
  Serious: Yes (Other)
  Sender: FDA-Public Use
  Company Number: US-BRISTOL-MYERS SQUIBB COMPANY-16307936

PATIENT
  Sex: Female

DRUGS (1)
  1. ORENCIA [Suspect]
     Dosage: LAST INFUSION ON 30NOV2011
     Dates: start: 20111005

REACTIONS (3)
  - RESPIRATORY TRACT INFECTION [None]
  - RASH [None]
  - URINARY TRACT INFECTION [None]
